FAERS Safety Report 4608214-2 (Version None)
Quarter: 2005Q1

REPORT INFORMATION
  Report Type: 
  Country: None (occurrence: None)
  Receive Date: 20050311
  Receipt Date: 20050303
  Transmission Date: 20050727
  Serious: Yes (Hospitalization)
  Sender: FDA-Public Use
  Company Number: 2005UW03421

PATIENT
  Age: 59 Year
  Sex: Female

DRUGS (2)
  1. SEROQUEL [Suspect]
     Indication: SCHIZOPHRENIA
     Dosage: 400 MG DAILY PO
     Route: 048
     Dates: start: 20040801, end: 20050211
  2. ARIPIPRAZOLE [Suspect]
     Indication: SCHIZOPHRENIA

REACTIONS (4)
  - CONDITION AGGRAVATED [None]
  - HALLUCINATION [None]
  - PSYCHOTIC DISORDER [None]
  - SCHIZOPHRENIA [None]
